FAERS Safety Report 6909181-9 (Version None)
Quarter: 2010Q3

REPORT INFORMATION
  Report Type: 
  Country: None (occurrence: None)
  Receive Date: 20100805
  Receipt Date: 20100726
  Transmission Date: 20110219
  Serious: Yes (Other)
  Sender: FDA-Public Use
  Company Number: US-WYE-H16474710

PATIENT
  Sex: Female
  Weight: 56.3 kg

DRUGS (8)
  1. PREMARIN [Suspect]
     Indication: HYSTERECTOMY
     Dosage: UNKNOWN
     Dates: start: 19861201
  2. PLAVIX [Concomitant]
     Dosage: NOT PROVIDED
  3. HYDROCHLOROTHIAZIDE [Concomitant]
     Indication: HYPERTENSION
     Dosage: 5/10 MG
  4. CYCLOBENZAPRINE [Concomitant]
     Dosage: NOT PROVIDED
  5. NORCO [Concomitant]
     Dosage: NOT PROVIDED
  6. OXYCONTIN [Concomitant]
     Dosage: NOT PROVIDED
  7. BENAZEPRIL [Concomitant]
     Indication: HYPERTENSION
     Dosage: 5/10 MG
  8. CITALOPRAM [Concomitant]
     Indication: DEPRESSION
     Dosage: 40 MG

REACTIONS (8)
  - BUNION [None]
  - CAROTID ARTERY OCCLUSION [None]
  - CEREBROVASCULAR ACCIDENT [None]
  - CLAUSTROPHOBIA [None]
  - INTERVERTEBRAL DISC PROTRUSION [None]
  - MYOCARDIAL INFARCTION [None]
  - NERVE INJURY [None]
  - OSTEOPOROSIS [None]
